FAERS Safety Report 5062847-0 (Version None)
Quarter: 2006Q3

REPORT INFORMATION
  Report Type: 
  Country: None (occurrence: None)
  Receive Date: 20060724
  Receipt Date: 20060718
  Transmission Date: 20061208
  Serious: Yes (Hospitalization)
  Sender: FDA-Public Use
  Company Number: 2006P1000248

PATIENT
  Age: 83 Year
  Sex: Male
  Weight: 80 kg

DRUGS (7)
  1. RETEPLASE (RETEPLASE) [Suspect]
     Indication: ACUTE MYOCARDIAL INFARCTION
     Dosage: IV
     Route: 042
     Dates: start: 20050704
  2. ABCIXIMA (ABCIXIMAB) [Suspect]
     Indication: ACUTE MYOCARDIAL INFARCTION
     Dosage: IV
     Route: 042
     Dates: start: 20050704
  3. ACETYLSALICYLIC ACID SRT [Concomitant]
  4. TICLOPIDINE [Concomitant]
  5. METOPROLOL [Concomitant]
  6. ATORVASTATIN CALCIUM [Concomitant]
  7. C0-DIOVAN [Concomitant]

REACTIONS (1)
  - CORONARY ARTERY STENOSIS [None]
